FAERS Safety Report 8075812-6 (Version None)
Quarter: 2012Q1

REPORT INFORMATION
  Report Type: 
  Country: None (occurrence: None)
  Receive Date: 20120127
  Receipt Date: 20120119
  Transmission Date: 20120608
  Serious: Yes (Hospitalization)
  Sender: FDA-Public Use
  Company Number: IT-PFIZER INC-IT-WYE-H09340709

PATIENT
  Age: 72 Year
  Sex: Female

DRUGS (7)
  1. LANSOPRAZOLE [Concomitant]
     Dosage: 30 MG, 1X/DAY
     Route: 065
  2. FELODIPINE [Concomitant]
     Dosage: 5 MG, 1X/DAY
     Route: 048
  3. KANRENOL [Concomitant]
     Dosage: 200 MG, 1X/DAY
     Route: 048
  4. AMIODARONE HCL [Suspect]
     Dosage: 200 MG, 1X/DAY
     Route: 048
     Dates: start: 20090218, end: 20090301
  5. RAMIPRIL [Suspect]
     Dosage: NOT PROVIDED
     Route: 065
     Dates: start: 20090101
  6. TICLOPIDINE [Concomitant]
     Dosage: 500 MG, 1X/DAY
     Route: 065
  7. RAMIPRIL [Suspect]
     Indication: ESSENTIAL HYPERTENSION
     Dosage: 10 MG, 1X/DAY
     Route: 048
     Dates: start: 20090218, end: 20090301

REACTIONS (7)
  - RASH MORBILLIFORM [None]
  - ALANINE AMINOTRANSFERASE INCREASED [None]
  - ASPARTATE AMINOTRANSFERASE INCREASED [None]
  - GAMMA-GLUTAMYLTRANSFERASE INCREASED [None]
  - HEPATIC ENZYME INCREASED [None]
  - SWOLLEN TONGUE [None]
  - EYELID OEDEMA [None]
